FAERS Safety Report 4631152-6 (Version None)
Quarter: 2005Q2

REPORT INFORMATION
  Report Type: 
  Country: None (occurrence: None)
  Receive Date: 20050407
  Receipt Date: 20050407
  Transmission Date: 20051028
  Serious: No
  Sender: FDA-Public Use
  Company Number: None

PATIENT
  Age: 58 Year
  Sex: Male
  Weight: 113.3993 kg

DRUGS (5)
  1. ZOSYN [Suspect]
     Indication: PNEUMONIA
     Dosage: 4.5 GM   Q 8 HRS  INTRAVENOU
     Route: 042
     Dates: start: 20040224, end: 20040319
  2. AVAPRO [Concomitant]
  3. NIFEDIPINE [Concomitant]
  4. METFORMIN [Concomitant]
  5. GLYBURIDE [Concomitant]

REACTIONS (3)
  - DIALYSIS [None]
  - NEPHRITIS INTERSTITIAL [None]
  - RENAL FAILURE ACUTE [None]
